FAERS Safety Report 17648334 (Version 1)
Quarter: 2020Q2

REPORT INFORMATION
  Report Type: Spontaneous
  Country: US (occurrence: US)
  Receive Date: 20200408
  Receipt Date: 20200408
  Transmission Date: 20200713
  Serious: Yes (Other)
  Sender: FDA-Public Use
  Company Number: US-UNITED THERAPEUTICS-UNT-2020-005328

PATIENT
  Age: 71 Year
  Sex: Female

DRUGS (4)
  1. SILDENAFIL. [Suspect]
     Active Substance: SILDENAFIL
     Indication: PULMONARY ARTERY DILATATION
     Dosage: 20 MG, TID
     Route: 048
  2. OXYGEN. [Concomitant]
     Active Substance: OXYGEN
     Dosage: UNK (10 LPM WITH ACTIVITY)
     Route: 065
  3. TYVASO [Suspect]
     Active Substance: TREPROSTINIL
     Indication: PULMONARY ARTERY DILATATION
     Dosage: 36 ?G, QID
  4. OXYGEN. [Concomitant]
     Active Substance: OXYGEN
     Indication: PRODUCT USED FOR UNKNOWN INDICATION
     Dosage: UNK (5 LPM DURING REST)
     Route: 065

REACTIONS (3)
  - Emphysema [Unknown]
  - Interstitial lung disease [Unknown]
  - Therapy non-responder [Unknown]
